FAERS Safety Report 11023358 (Version 2)
Quarter: 2015Q2

REPORT INFORMATION
  Report Type: Spontaneous
  Country: US (occurrence: US)
  Receive Date: 20150413
  Receipt Date: 20150507
  Transmission Date: 20150821
  Serious: No
  Sender: FDA-Public Use
  Company Number: US-PFIZER INC-2015123294

PATIENT
  Age: 55 Year
  Sex: Female

DRUGS (6)
  1. PRISTIQ EXTENDED RELEASE [Suspect]
     Active Substance: DESVENLAFAXINE SUCCINATE
     Dosage: 50 MG, 1X/DAY (1 TAB DAILY/SAMPLES GIVEN/ 17 TAB PACK. ORALLY ONCE A DAY)
     Route: 048
     Dates: start: 20140312
  2. CLOTRIMAZOLE. [Concomitant]
     Active Substance: CLOTRIMAZOLE
     Dosage: UNK, 2X/DAY (1 APPLICATION TO AFFECTED AREA EXTERNALLY)
     Dates: start: 20141009
  3. OXYCODONE-ACETAMINOPHEN [Concomitant]
     Active Substance: ACETAMINOPHEN\OXYCODONE HYDROCHLORIDE
     Dosage: (OXYCODONE 5MG /PARACETAMOL 325MG) [1-2 TABLETS AS NEEDED EVERY 8 HOURS]
     Route: 048
     Dates: start: 20140726
  4. VALTREX [Concomitant]
     Active Substance: VALACYCLOVIR HYDROCHLORIDE
     Dosage: 1 G, 2X/DAY (TABLET ORALLY EVERY 12 HRS)
     Route: 048
     Dates: start: 20140424
  5. KLONOPIN [Concomitant]
     Active Substance: CLONAZEPAM
     Dosage: 1 MG TABLET IN THE AM, 2 TABLETS AT BEDTIME
     Route: 048
  6. FLEXERIL [Interacting]
     Active Substance: CYCLOBENZAPRINE HYDROCHLORIDE
     Dosage: UNK

REACTIONS (3)
  - Drug interaction [Unknown]
  - Somnolence [Unknown]
  - Depression [Unknown]
